FAERS Safety Report 17202753 (Version 2)
Quarter: 2020Q1

REPORT INFORMATION
  Report Type: Spontaneous
  Country: FR (occurrence: FR)
  Receive Date: 20191226
  Receipt Date: 20200101
  Transmission Date: 20200409
  Serious: Yes (Other)
  Sender: FDA-Public Use
  Company Number: FR-MYLANLABS-2019M1126313

PATIENT
  Age: 60 Year
  Sex: Female

DRUGS (3)
  1. SIMVASTATINE [Concomitant]
     Active Substance: SIMVASTATIN
     Indication: PRODUCT USED FOR UNKNOWN INDICATION
     Dosage: 10 MILLIGRAM
  2. EFFERALGAN [Suspect]
     Active Substance: ACETAMINOPHEN
     Indication: PRODUCT USED FOR UNKNOWN INDICATION
     Dosage: 3 GRAM, QD
     Route: 048
  3. ZOLEDRONIC ACID [Suspect]
     Active Substance: ZOLEDRONIC ACID
     Indication: BONE DECALCIFICATION
     Dosage: 5/100 MG/ML, QD
     Route: 042
     Dates: start: 20190729

REACTIONS (15)
  - Thrombosis [Unknown]
  - Diplopia [Unknown]
  - Ocular hyperaemia [Unknown]
  - Eye inflammation [Unknown]
  - Eye haemorrhage [Unknown]
  - Facial pain [Unknown]
  - Swelling of eyelid [Unknown]
  - Nausea [Unknown]
  - Choroidal effusion [Unknown]
  - Vision blurred [Unknown]
  - Conjunctival haemorrhage [Recovered/Resolved]
  - Eye pain [Recovered/Resolved]
  - Lacrimation increased [Unknown]
  - Headache [Unknown]
  - Photophobia [Unknown]

NARRATIVE: CASE EVENT DATE: 20190720
